FAERS Safety Report 25646208 (Version 2)
Quarter: 2025Q3

REPORT INFORMATION
  Report Type: Spontaneous
  Country: US (occurrence: US)
  Receive Date: 20250805
  Receipt Date: 20250811
  Transmission Date: 20251021
  Serious: Yes (Other)
  Sender: BIOMARIN
  Company Number: US-BIOMARINAP-US-2025-167834

PATIENT
  Sex: Female

DRUGS (5)
  1. PALYNZIQ [Suspect]
     Active Substance: PEGVALIASE-PQPZ
     Indication: Phenylketonuria
     Dosage: 40 MILLIGRAM, QD
     Dates: start: 20250701, end: 20250715
  2. PALYNZIQ [Suspect]
     Active Substance: PEGVALIASE-PQPZ
  3. PALYNZIQ [Suspect]
     Active Substance: PEGVALIASE-PQPZ
     Dosage: 20 MILLIGRAM, QD
     Dates: start: 20250601, end: 20250630
  4. ZYRTEC [Concomitant]
     Active Substance: CETIRIZINE HYDROCHLORIDE
     Indication: Premedication
     Dosage: 10 MILLIGRAM, QD
     Dates: start: 20250529, end: 20250715
  5. PEPCID [Concomitant]
     Active Substance: FAMOTIDINE
     Indication: Premedication
     Dosage: 20 MILLIGRAM, QD
     Dates: start: 20250529, end: 20250715

REACTIONS (6)
  - Abortion spontaneous [Recovered/Resolved]
  - Vaginal haemorrhage [Recovered/Resolved]
  - Muscle spasms [Recovered/Resolved]
  - Ovarian mass [Unknown]
  - Ovarian cyst [Unknown]
  - Maternal exposure during pregnancy [Recovered/Resolved]

NARRATIVE: CASE EVENT DATE: 20250726
